FAERS Safety Report 7917981-1 (Version None)
Quarter: 2011Q4

REPORT INFORMATION
  Report Type: 
  Country: None (occurrence: None)
  Receive Date: 20111116
  Receipt Date: 20111103
  Transmission Date: 20120403
  Serious: Yes (Other)
  Sender: FDA-Public Use
  Company Number: US-RB-029900-11

PATIENT
  Age: 17 Year
  Sex: Male

DRUGS (1)
  1. MUCINEX FULL FORCE NASAL SPRAY [Suspect]
     Dosage: TOOK IT ONE TIME ONLY
     Route: 045
     Dates: start: 20111101

REACTIONS (1)
  - EPISTAXIS [None]
